FAERS Safety Report 10229476 (Version 1)
Quarter: 2014Q2

REPORT INFORMATION
  Report Type: Spontaneous
  Country: US (occurrence: None)
  Receive Date: 20140522
  Receipt Date: 20140522
  Transmission Date: 20141212
  Serious: Yes (Other)
  Sender: FDA-Public Use
  Company Number: 1000064709

PATIENT
  Sex: Female

DRUGS (2)
  1. TUDORZA [Suspect]
     Indication: CHRONIC OBSTRUCTIVE PULMONARY DISEASE
     Dosage: 800MCG (400 MCG,2 IN 1 D),RESPIRATORY (INHALATION)
     Route: 055
     Dates: start: 2013
  2. TUDORZA [Suspect]
     Indication: EMPHYSEMA
     Dosage: 800MCG (400 MCG,2 IN 1 D),RESPIRATORY (INHALATION)
     Route: 055
     Dates: start: 2013

REACTIONS (2)
  - Bronchitis [None]
  - Nasopharyngitis [None]
